FAERS Safety Report 11423035 (Version 2)
Quarter: 2015Q4

REPORT INFORMATION
  Report Type: Report from Study
  Country: US (occurrence: US)
  Receive Date: 20150827
  Receipt Date: 20151016
  Transmission Date: 20160304
  Serious: Yes (Hospitalization, Other)
  Sender: FDA-Public Use
  Company Number: US-JNJFOC-20150820435

PATIENT
  Age: 82 Year
  Sex: Male

DRUGS (21)
  1. VITAMIN C [Concomitant]
     Active Substance: ASCORBIC ACID
  2. PROCHLORPERAZINE MALEATE. [Concomitant]
     Active Substance: PROCHLORPERAZINE MALEATE
     Dosage: 1 DF, TID PRN
  3. FLEXERIL [Concomitant]
     Active Substance: CYCLOBENZAPRINE HYDROCHLORIDE
  4. MELOXICAM. [Concomitant]
     Active Substance: MELOXICAM
  5. SIMVASTATIN. [Concomitant]
     Active Substance: SIMVASTATIN
  6. BACTRIM DS [Concomitant]
     Active Substance: SULFAMETHOXAZOLE\TRIMETHOPRIM
  7. CYMBALTA [Concomitant]
     Active Substance: DULOXETINE HYDROCHLORIDE
  8. DULCOLAX NOS [Concomitant]
     Active Substance: BISACODYL OR DOCUSATE SODIUM
  9. IMBRUVICA [Suspect]
     Active Substance: IBRUTINIB
     Indication: CHRONIC LYMPHOCYTIC LEUKAEMIA
     Route: 048
     Dates: start: 20140328
  10. ASPIRIN. [Concomitant]
     Active Substance: ASPIRIN
  11. METOPROLOL [Concomitant]
     Active Substance: METOPROLOL
  12. TYLENOL [Concomitant]
     Active Substance: ACETAMINOPHEN
  13. PROCRIT (ERYTHROPOIETIN) [Concomitant]
  14. CILOSTAZOL. [Concomitant]
     Active Substance: CILOSTAZOL
  15. VALTREX [Concomitant]
     Active Substance: VALACYCLOVIR HYDROCHLORIDE
  16. ZANTAC [Concomitant]
     Active Substance: RANITIDINE HYDROCHLORIDE
  17. PLETAL [Concomitant]
     Active Substance: CILOSTAZOL
  18. ALLOPURINOL. [Concomitant]
     Active Substance: ALLOPURINOL
  19. VICODIN [Concomitant]
     Active Substance: ACETAMINOPHEN\HYDROCODONE BITARTRATE
  20. ZOCOR [Concomitant]
     Active Substance: SIMVASTATIN
  21. ONDANSETRON [Concomitant]
     Active Substance: ONDANSETRON
     Dosage: 1 DF, BID X 3DAYS, THEN PRN

REACTIONS (10)
  - Haemoglobin decreased [Unknown]
  - Synovial rupture [Unknown]
  - Confusional state [Recovered/Resolved]
  - Herpes zoster [Unknown]
  - Thrombosis [Recovering/Resolving]
  - Hallucination, visual [Recovered/Resolved]
  - Restlessness [Recovered/Resolved]
  - Renal disorder [Unknown]
  - Haematocrit decreased [Unknown]
  - Peripheral artery stenosis [Unknown]

NARRATIVE: CASE EVENT DATE: 2015
